FAERS Safety Report 11516564 (Version 1)
Quarter: 2015Q3

REPORT INFORMATION
  Report Type: Spontaneous
  Country: US (occurrence: US)
  Receive Date: 20150917
  Receipt Date: 20150917
  Transmission Date: 20151125
  Serious: Yes (Hospitalization, Other)
  Sender: FDA-Public Use
  Company Number: US-ASTRAZENECA-2012SE00718

PATIENT
  Age: 49 Year
  Sex: Female
  Weight: 36.3 kg

DRUGS (25)
  1. ROBAXIN-750 [Concomitant]
     Indication: MUSCLE SPASMS
     Route: 048
     Dates: start: 20110701
  2. MYLANTA [Concomitant]
     Active Substance: ALUMINUM HYDROXIDE\DIMETHICONE\MAGNESIUM HYDROXIDE
     Indication: GASTROOESOPHAGEAL REFLUX DISEASE
     Route: 048
  3. PROBIOTICS [Concomitant]
     Active Substance: PROBIOTICS NOS
     Indication: COLITIS
     Dosage: DAILY, 100 BILLION
     Route: 048
     Dates: start: 201506
  4. NEXIUM [Suspect]
     Active Substance: ESOMEPRAZOLE MAGNESIUM
     Indication: GASTROOESOPHAGEAL REFLUX DISEASE
     Route: 048
  5. CARAFATE [Concomitant]
     Active Substance: SUCRALFATE
     Dosage: 1 GM, FOUR TIMES DAILY, AS REQUIRED
     Dates: start: 20111024
  6. PERCOCET [Concomitant]
     Active Substance: ACETAMINOPHEN\OXYCODONE HYDROCHLORIDE
     Indication: PAIN
     Dosage: 10/325 MG 1 TAB TWICE DAILY AS NEEDED
     Route: 048
     Dates: start: 2013
  7. HYDROCODONE [Concomitant]
     Active Substance: HYDROCODONE
     Indication: PAIN
     Dosage: 8 MG, THREE TIMES DAILY AS NEEDED
     Dates: start: 201505
  8. DEMEROL [Concomitant]
     Active Substance: MEPERIDINE HYDROCHLORIDE
     Dosage: 50 MG, 1-2 EVERY 6 HORSPRN
     Dates: start: 20111116
  9. ENSURE [Concomitant]
     Active Substance: AMINO ACIDS\DEXTROSE\ELECTROLYTES NOS\SOYBEAN OIL\VITAMINS
     Dosage: 240 ML, 1 TWO TIMES DAILY
     Dates: start: 20110620
  10. ELIQUIS [Concomitant]
     Active Substance: APIXABAN
     Indication: ANTICOAGULANT THERAPY
     Route: 048
     Dates: start: 201506
  11. PERCOCET [Concomitant]
     Active Substance: ACETAMINOPHEN\OXYCODONE HYDROCHLORIDE
     Indication: PAIN
     Dosage: 10/325. 1 FOUR TIMES DAILY
     Route: 048
     Dates: start: 20111202
  12. REMERON [Concomitant]
     Active Substance: MIRTAZAPINE
     Dosage: 1-2 TAB AT BED TIME
     Dates: start: 20111116
  13. SUCRALFATE. [Concomitant]
     Active Substance: SUCRALFATE
     Indication: GASTROOESOPHAGEAL REFLUX DISEASE
     Route: 048
  14. ADAPT LABS PETROLATUM COMPOUND [Concomitant]
     Dosage: APPLY TWO TIMES A DAY
     Dates: start: 20110422
  15. PHENERGAN [Concomitant]
     Active Substance: PROMETHAZINE HYDROCHLORIDE
     Dosage: 50 MG, 1
     Dates: start: 20110323
  16. GABAPENTIN. [Concomitant]
     Active Substance: GABAPENTIN
     Indication: NEURALGIA
     Route: 048
  17. DIAZEPAM. [Concomitant]
     Active Substance: DIAZEPAM
     Indication: NERVE INJURY
     Route: 048
     Dates: start: 20111216
  18. DIAZEPAM. [Concomitant]
     Active Substance: DIAZEPAM
     Indication: NERVE INJURY
     Route: 048
  19. ADAPTLABS PETROATUM COMPOUND [Concomitant]
  20. PROMETHAZINE VC [Concomitant]
     Active Substance: PHENYLEPHRINE HYDROCHLORIDE\PROMETHAZINE HYDROCHLORIDE
     Dosage: 2 TSP FOUR TIMES DAILY PRN
     Dates: start: 20111028
  21. PHENERGAN [Concomitant]
     Active Substance: PROMETHAZINE HYDROCHLORIDE
     Dosage: 50 MG, 1 FOUR TIMES DAILY, PRN
     Dates: start: 20110517
  22. PREMARIN [Concomitant]
     Active Substance: ESTROGENS, CONJUGATED
     Dates: start: 20111028
  23. PROBIOTICS [Concomitant]
     Active Substance: PROBIOTICS NOS
     Indication: IRRITABLE BOWEL SYNDROME
     Dosage: DAILY, 100 BILLION
     Route: 048
     Dates: start: 201506
  24. NEXIUM [Suspect]
     Active Substance: ESOMEPRAZOLE MAGNESIUM
     Indication: GASTROOESOPHAGEAL REFLUX DISEASE
     Route: 048
  25. NICODERM CQ [Concomitant]
     Active Substance: NICOTINE
     Dates: start: 20111202

REACTIONS (12)
  - Thrombosis [Unknown]
  - Weight gain poor [Unknown]
  - Fall [Unknown]
  - Exostosis [Unknown]
  - Drug dose omission [Unknown]
  - Pain [Unknown]
  - Femur fracture [Unknown]
  - Arthropathy [Unknown]
  - Neuropathy peripheral [Unknown]
  - Colitis [Unknown]
  - Cough [Unknown]
  - Lumbar spinal stenosis [Unknown]

NARRATIVE: CASE EVENT DATE: 2007
